FAERS Safety Report 4544679-2 (Version None)
Quarter: 2004Q4

REPORT INFORMATION
  Report Type: 
  Country: None (occurrence: None)
  Receive Date: 20041230
  Receipt Date: 20041215
  Transmission Date: 20050328
  Serious: Yes (Hospitalization)
  Sender: FDA-Public Use
  Company Number: 2004VX000951

PATIENT
  Age: 51 Year
  Sex: Female

DRUGS (3)
  1. FLUOROURACIL [Suspect]
     Indication: BREAST CANCER
     Dosage: 900 MG; DAILY; INTRAVENOUS
     Route: 042
     Dates: start: 20040901, end: 20041027
  2. METHOTREXATE [Suspect]
     Indication: BREAST CANCER
     Dosage: 50 MG; INTRAVENOUS
     Route: 042
     Dates: start: 20040901, end: 20041027
  3. CYCLOPHOSPHAMIDE [Suspect]
     Indication: BREAST CANCER
     Dosage: 100 MG; ORAL
     Route: 048
     Dates: start: 20040901, end: 20041031

REACTIONS (7)
  - DISSEMINATED INTRAVASCULAR COAGULATION [None]
  - DYSPNOEA [None]
  - MALAISE [None]
  - NEUTROPENIA [None]
  - PNEUMONIA [None]
  - POST PROCEDURAL COMPLICATION [None]
  - PYREXIA [None]
